FAERS Safety Report 21418185 (Version 1)
Quarter: 2022Q4

REPORT INFORMATION
  Report Type: Spontaneous
  Country: DE (occurrence: DE)
  Receive Date: 20221006
  Receipt Date: 20221006
  Transmission Date: 20230113
  Serious: Yes (Other)
  Sender: FDA-Public Use
  Company Number: DE-AMGEN-DEUSP2022168729

PATIENT
  Sex: Female

DRUGS (5)
  1. LUMAKRAS [Suspect]
     Active Substance: SOTORASIB
     Indication: K-ras gene mutation
     Dosage: UNK
     Route: 065
  2. LUMAKRAS [Suspect]
     Active Substance: SOTORASIB
     Indication: Small intestine carcinoma
  3. LUMAKRAS [Suspect]
     Active Substance: SOTORASIB
     Indication: Off label use
  4. PANITUMUMAB [Suspect]
     Active Substance: PANITUMUMAB
     Indication: Small intestine carcinoma
     Dosage: UNK
     Route: 065
  5. PANITUMUMAB [Suspect]
     Active Substance: PANITUMUMAB
     Indication: K-ras gene mutation

REACTIONS (2)
  - Small intestine carcinoma [Unknown]
  - Off label use [Unknown]
